FAERS Safety Report 18582220 (Version 1)
Quarter: 2020Q4

REPORT INFORMATION
  Report Type: Spontaneous
  Country: CL (occurrence: CL)
  Receive Date: 20201204
  Receipt Date: 20201204
  Transmission Date: 20210114
  Serious: Yes (Other)
  Sender: FDA-Public Use
  Company Number: CL-US-PROVELL PHARMACEUTICALS LLC-9202969

PATIENT

DRUGS (1)
  1. EUTHYROX [Suspect]
     Active Substance: LEVOTHYROXINE SODIUM
     Indication: HYPOTHYROIDISM

REACTIONS (8)
  - Seizure [Unknown]
  - Oropharyngeal discomfort [Unknown]
  - Weight increased [Not Recovered/Not Resolved]
  - Insomnia [Unknown]
  - Body temperature decreased [Unknown]
  - Alopecia [Unknown]
  - Thyrotoxic crisis [Unknown]
  - Fatigue [Unknown]
